FAERS Safety Report 5994938-1 (Version None)
Quarter: 2008Q4

REPORT INFORMATION
  Report Type: 
  Country: None (occurrence: None)
  Receive Date: 20081212
  Receipt Date: 20080917
  Transmission Date: 20090506
  Serious: No
  Sender: FDA-Public Use
  Company Number: US-ABBOTT-08P-163-0477004-00

PATIENT
  Sex: Female
  Weight: 50.848 kg

DRUGS (3)
  1. HUMIRA [Suspect]
     Indication: PSORIASIS
     Dosage: 80 MG LOADING DOSE
     Route: 050
     Dates: start: 20080916
  2. HUMIRA [Suspect]
  3. UNKNOWN BIRTH CONTROL PILL [Concomitant]
     Indication: CONTRACEPTION
     Route: 048
     Dates: start: 20060101

REACTIONS (1)
  - ACCIDENTAL EXPOSURE [None]
